FAERS Safety Report 7266136-5 (Version None)
Quarter: 2011Q1

REPORT INFORMATION
  Report Type: 
  Country: None (occurrence: None)
  Receive Date: 20110120
  Receipt Date: 20110107
  Transmission Date: 20110831
  Serious: Yes (Hospitalization)
  Sender: FDA-Public Use
  Company Number: 012235

PATIENT

DRUGS (3)
  1. LUMINAL /00023201/ [Concomitant]
  2. LAMICTAL [Concomitant]
  3. LEVETIRACETAM [Suspect]
     Indication: PARTIAL SEIZURES
     Dosage: UP TO 50-60 MG/KG)

REACTIONS (2)
  - MYOCLONIC EPILEPSY [None]
  - TONIC CONVULSION [None]
